FAERS Safety Report 9191287 (Version 2)
Quarter: 2013Q1

REPORT INFORMATION
  Report Type: Spontaneous
  Country: DE (occurrence: GR)
  Receive Date: 20130326
  Receipt Date: 20130329
  Transmission Date: 20140127
  Serious: Yes (Other)
  Sender: FDA-Public Use
  Company Number: GR-FRI-1000043749

PATIENT
  Sex: Male

DRUGS (5)
  1. MEMANTINE [Suspect]
     Indication: DEMENTIA ALZHEIMER^S TYPE
     Dosage: 20 MG
     Route: 048
     Dates: start: 201208, end: 201209
  2. STALEVO [Concomitant]
     Indication: PARKINSON^S DISEASE
     Route: 048
  3. REMINYL [Concomitant]
     Indication: DEMENTIA ALZHEIMER^S TYPE
     Route: 048
  4. NEUPRO [Concomitant]
     Indication: PARKINSON^S DISEASE
  5. ZOLOFT [Concomitant]
     Indication: MAJOR DEPRESSION
     Route: 048

REACTIONS (1)
  - Rash [Recovered/Resolved]
